FAERS Safety Report 10396549 (Version 1)
Quarter: 2014Q3

REPORT INFORMATION
  Report Type: Spontaneous
  Country: US (occurrence: US)
  Receive Date: 20140820
  Receipt Date: 20140820
  Transmission Date: 20150326
  Serious: Yes (Other)
  Sender: FDA-Public Use
  Company Number: US-GILEAD-2014-0112501

PATIENT
  Age: 51 Year
  Sex: Female

DRUGS (3)
  1. ADEMPAS [Concomitant]
     Active Substance: RIOCIGUAT
  2. LETAIRIS [Suspect]
     Active Substance: AMBRISENTAN
     Indication: PRODUCT USED FOR UNKNOWN INDICATION
     Dosage: 10 MG, QD
     Route: 065
     Dates: start: 20120229
  3. TYVASO [Concomitant]
     Active Substance: TREPROSTINIL

REACTIONS (6)
  - Haemoptysis [Unknown]
  - Cough [Unknown]
  - Abdominal pain upper [Unknown]
  - Otorrhoea [Unknown]
  - Haematemesis [Unknown]
  - Ear tube insertion [Unknown]

NARRATIVE: CASE EVENT DATE: 20140815
